FAERS Safety Report 13088842 (Version 1)
Quarter: 2016Q4

REPORT INFORMATION
  Report Type: Spontaneous
  Country: US (occurrence: US)
  Receive Date: 20161231
  Receipt Date: 20161231
  Transmission Date: 20170207
  Serious: Yes (Other)
  Sender: FDA-Public Use
  Company Number: None

PATIENT
  Age: 31 Year
  Sex: Male
  Weight: 90.9 kg

DRUGS (2)
  1. ZINC COLD THERAPY QUICK DISSOLVI WALGREENS [Suspect]
     Active Substance: HOMEOPATHICS
     Indication: NASOPHARYNGITIS
     Dosage: 25 DISSOLVING TABLET, ORAL EVERY 3 HOURS?
     Route: 048
     Dates: start: 20161229, end: 20161231
  2. L-CITRULLINE AND WHEY PROTEIN ISOLATE SHAKES [Concomitant]

REACTIONS (1)
  - Dysgeusia [None]

NARRATIVE: CASE EVENT DATE: 20161231
